FAERS Safety Report 7680773-5 (Version None)
Quarter: 2011Q3

REPORT INFORMATION
  Report Type: 
  Country: None (occurrence: None)
  Receive Date: 20110812
  Receipt Date: 20110809
  Transmission Date: 20111222
  Serious: Yes (Hospitalization, Other)
  Sender: FDA-Public Use
  Company Number: US-BAYER-201041746NA

PATIENT
  Age: 45 Year
  Sex: Female

DRUGS (9)
  1. POTASSIUM [Concomitant]
  2. AMANTADINE HCL [Concomitant]
  3. HORMONES NOS [Concomitant]
  4. BETASERON [Suspect]
     Indication: RELAPSING-REMITTING MULTIPLE SCLEROSIS
     Dosage: 8MIU QOD
     Route: 058
     Dates: start: 20091114
  5. ANTIHYPERTENSIVES [Concomitant]
     Indication: HYPERTENSION
  6. BACLOFEN [Concomitant]
  7. MIRAPEX [Concomitant]
  8. PROZAC [Concomitant]
  9. CHOLESTEROL- AND TRIGLYCERIDE REDUCERS [Concomitant]
     Indication: BLOOD CHOLESTEROL INCREASED

REACTIONS (8)
  - RENAL FAILURE [None]
  - MULTIPLE SCLEROSIS RELAPSE [None]
  - DYSPNOEA [None]
  - GROIN ABSCESS [None]
  - BLOOD POTASSIUM DECREASED [None]
  - BAND SENSATION [None]
  - BACK PAIN [None]
  - DEPRESSED LEVEL OF CONSCIOUSNESS [None]
